FAERS Safety Report 6295535-3 (Version None)
Quarter: 2009Q3

REPORT INFORMATION
  Report Type: 
  Country: None (occurrence: None)
  Receive Date: 20090731
  Receipt Date: 20090716
  Transmission Date: 20100115
  Serious: Yes (Life-Threatening)
  Sender: FDA-Public Use
  Company Number: 2009-03023

PATIENT
  Age: 59 Year
  Sex: Female

DRUGS (4)
  1. VELCADE [Suspect]
     Indication: MULTIPLE MYELOMA
     Dosage: INTRAVENOUS; 1 MG/M2, INTRAVENOUS
     Route: 042
     Dates: start: 20090625, end: 20090706
  2. PLACEBO (PLACEBO) [Suspect]
     Indication: MULTIPLE MYELOMA
     Dosage: INTRAVENOUS
     Route: 042
     Dates: start: 20090629, end: 20090629
  3. CLODRONATE DISODIUM (CLODRONATE DISODIUM) [Concomitant]
  4. SULFAMETHOXAZOE W/TRIMETHOPRIM (SULFAMETHOXAZOLE, TRIMETHOPRIM) [Concomitant]

REACTIONS (1)
  - THROMBOCYTOPENIA [None]
